FAERS Safety Report 6297632-5 (Version None)
Quarter: 2009Q3

REPORT INFORMATION
  Report Type: 
  Country: None (occurrence: None)
  Receive Date: 20090805
  Receipt Date: 20090728
  Transmission Date: 20100115
  Serious: Yes (Other)
  Sender: FDA-Public Use
  Company Number: BE-ALLERGAN-0910578US

PATIENT
  Age: 77 Year
  Sex: Female

DRUGS (1)
  1. ALPHAGAN [Suspect]
     Indication: GLAUCOMA
     Dosage: UNK, UNK
     Route: 047

REACTIONS (1)
  - UVEITIS [None]
